FAERS Safety Report 24630001 (Version 1)
Quarter: 2024Q4

REPORT INFORMATION
  Report Type: Spontaneous
  Country: US (occurrence: US)
  Receive Date: 20241118
  Receipt Date: 20241118
  Transmission Date: 20250115
  Serious: No
  Sender: GRIFOLS
  Company Number: US-IGSA-BIG0029544

PATIENT
  Sex: Male

DRUGS (1)
  1. XEMBIFY [Suspect]
     Active Substance: HUMAN IMMUNOGLOBULIN G
     Indication: Immunodeficiency common variable
     Dosage: 24 GRAM, Q.2WK.
     Route: 058
     Dates: start: 2024

REACTIONS (4)
  - Headache [Unknown]
  - Fatigue [Unknown]
  - Nausea [Unknown]
  - Upper respiratory tract infection [Unknown]
